FAERS Safety Report 5005355-5 (Version None)
Quarter: 2006Q2

REPORT INFORMATION
  Report Type: 
  Country: None (occurrence: None)
  Receive Date: 20060518
  Receipt Date: 20050831
  Transmission Date: 20061013
  Serious: Yes (Hospitalization, Disabling)
  Sender: FDA-Public Use
  Company Number: US-MERCK-0509USA00210

PATIENT
  Age: 47 Year
  Sex: Male
  Weight: 80 kg

DRUGS (6)
  1. VIOXX [Suspect]
     Indication: ARTHRITIS
     Route: 048
     Dates: start: 20001101, end: 20041001
  2. CELEXA [Concomitant]
     Route: 065
  3. ASPIRIN [Concomitant]
     Route: 065
  4. NEXIUM [Concomitant]
     Route: 065
  5. PRAVACHOL [Concomitant]
     Route: 065
  6. TOPROL-XL [Concomitant]
     Route: 065

REACTIONS (8)
  - ANXIETY [None]
  - CARDIAC DISORDER [None]
  - CEREBROVASCULAR ACCIDENT [None]
  - CORONARY ARTERY DISEASE [None]
  - CORONARY ARTERY OCCLUSION [None]
  - FEAR [None]
  - MYOCARDIAL INFARCTION [None]
  - PAIN [None]
